FAERS Safety Report 8812287 (Version 1)
Quarter: 2012Q4

REPORT INFORMATION
  Report Type: Spontaneous
  Country: DE (occurrence: None)
  Receive Date: 20120925
  Receipt Date: 20120925
  Transmission Date: 20130627
  Serious: Yes (Death)
  Sender: FDA-Public Use
  Company Number: FK201202714

PATIENT
  Age: 89 Year
  Sex: Male

DRUGS (8)
  1. HALOPERIDOL [Suspect]
     Indication: PRODUCT USED FOR UNKNOWN INDICATION
  2. RISPERIDONE [Suspect]
     Indication: PRODUCT USED FOR UNKNOWN INDICATION
  3. GALANTAMINE [Suspect]
     Indication: PRODUCT USED FOR UNKNOWN INDICATION
  4. ALFUZOSIN (ALFUZOSIN) [Suspect]
     Indication: PRODUCT USED FOR UNKNOWN INDICATION
  5. MELPERONE (MELPERONE) [Suspect]
     Indication: PRODUCT USED FOR UNKNOWN INDICATION
  6. LORAZEPAM (LORAZEPAM) [Concomitant]
  7. BISOPROLOL (BISOPROLOL) [Concomitant]
  8. CAPTOPRIL (CAPTOPRIL) [Concomitant]

REACTIONS (6)
  - Sudden death [None]
  - Fatigue [None]
  - Drug interaction [None]
  - Arrhythmia [None]
  - Embolism [None]
  - Hypotension [None]
